FAERS Safety Report 13348771 (Version 1)
Quarter: 2017Q1

REPORT INFORMATION
  Report Type: Report from Study
  Country: US (occurrence: US)
  Receive Date: 20170320
  Receipt Date: 20170320
  Transmission Date: 20170428
  Serious: Yes (Other)
  Sender: FDA-Public Use
  Company Number: US-ROCHE-1907755

PATIENT
  Age: 55 Year
  Sex: Male

DRUGS (7)
  1. GANCICLOVIR. [Suspect]
     Active Substance: GANCICLOVIR
     Indication: ANTIVIRAL PROPHYLAXIS
     Dosage: AT A DOSE OF 5 MG/KG TWICE A DAY FOR 1-3 WEEKS
     Route: 042
  2. CYCLOSPORINE. [Suspect]
     Active Substance: CYCLOSPORINE
     Indication: PROPHYLAXIS AGAINST TRANSPLANT REJECTION
     Route: 065
  3. PREDNISOLONE. [Suspect]
     Active Substance: PREDNISOLONE
     Indication: PROPHYLAXIS AGAINST TRANSPLANT REJECTION
     Route: 065
  4. MYCOPHENOLATE MOFETIL. [Suspect]
     Active Substance: MYCOPHENOLATE MOFETIL
     Indication: PROPHYLAXIS AGAINST TRANSPLANT REJECTION
     Route: 065
  5. GANCICLOVIR. [Suspect]
     Active Substance: GANCICLOVIR
     Route: 042
  6. GANCICLOVIR. [Suspect]
     Active Substance: GANCICLOVIR
     Route: 048
  7. DACLIZUMAB [Suspect]
     Active Substance: DACLIZUMAB
     Indication: PROPHYLAXIS AGAINST TRANSPLANT REJECTION
     Dosage: ON DAYS 1 AND 14 POST-TRANSPLANT
     Route: 065

REACTIONS (5)
  - Drug resistance [Unknown]
  - Cytomegalovirus infection [Recovered/Resolved]
  - Pneumonia viral [Recovered/Resolved]
  - Pseudomonas bronchitis [Unknown]
  - Neutropenia [Unknown]
